FAERS Safety Report 9937060 (Version 1)
Quarter: 2014Q1

REPORT INFORMATION
  Report Type: Spontaneous
  Country: US (occurrence: None)
  Receive Date: 20140122
  Receipt Date: 20140122
  Transmission Date: 20141002
  Serious: No
  Sender: FDA-Public Use
  Company Number: AP356-00297-SPO-US

PATIENT
  Age: 50 Year
  Sex: Male
  Weight: 114 kg

DRUGS (3)
  1. BELVIQ [Suspect]
     Indication: WEIGHT DECREASED
     Dates: start: 20131022
  2. LISINOPRIL WITH HYDROCHLOROTHIAZIDE (PRINZIDE /00977901/) [Concomitant]
  3. GLIMPERIDE [Concomitant]

REACTIONS (1)
  - Impatience [None]
